FAERS Safety Report 8455333-9 (Version None)
Quarter: 2012Q2

REPORT INFORMATION
  Report Type: 
  Country: None (occurrence: None)
  Receive Date: 20120613
  Receipt Date: 20120605
  Transmission Date: 20120825
  Serious: Yes (Other)
  Sender: FDA-Public Use
  Company Number: 2012SP007332

PATIENT
  Age: 47 Year
  Sex: Female
  Weight: 55 kg

DRUGS (9)
  1. INCIVO (TELAPREVIR) (ANTIVIRALS NOS) [Suspect]
     Indication: HEPATITIS C
     Dates: start: 20120110
  2. INCIVO (TELAPREVIR) (ANTIVIRALS NOS) [Suspect]
     Indication: HEPATITIS C
     Dates: start: 20111220, end: 20111227
  3. REBETOL [Suspect]
     Indication: PRODUCT USED FOR UNKNOWN INDICATION
     Dates: start: 20120110
  4. REBETOL [Suspect]
     Indication: PRODUCT USED FOR UNKNOWN INDICATION
     Dates: start: 20111220, end: 20111227
  5. ESCITALOPRAM [Concomitant]
  6. PEG-INTRON [Suspect]
     Indication: PRODUCT USED FOR UNKNOWN INDICATION
     Dates: start: 20111220, end: 20111227
  7. PEG-INTRON [Suspect]
     Indication: PRODUCT USED FOR UNKNOWN INDICATION
     Dates: start: 20120110
  8. ESCITALOPRAM OXALATE [Concomitant]
  9. ZOLPIDEM [Concomitant]

REACTIONS (1)
  - DRUG RASH WITH EOSINOPHILIA AND SYSTEMIC SYMPTOMS [None]
